FAERS Safety Report 23468339 (Version 2)
Quarter: 2024Q1

REPORT INFORMATION
  Report Type: Spontaneous
  Country: US (occurrence: US)
  Receive Date: 20240202
  Receipt Date: 20240216
  Transmission Date: 20240410
  Serious: Yes (Other)
  Sender: FDA-Public Use
  Company Number: US-ABBVIE-5608382

PATIENT
  Age: 67 Year
  Sex: Female
  Weight: 88 kg

DRUGS (4)
  1. REFRESH LACRI-LUBE [Suspect]
     Active Substance: MINERAL OIL\PETROLATUM
     Indication: Dry eye
     Dosage: 1-2 DROP AT NIGHT
     Route: 047
     Dates: start: 2014
  2. REFRESH OPTIVE [Concomitant]
     Active Substance: CARBOXYMETHYLCELLULOSE SODIUM\GLYCERIN
     Indication: Dry eye
     Dates: start: 202306
  3. SODIUM CHLORIDE [Concomitant]
     Active Substance: SODIUM CHLORIDE
     Indication: Dry eye
     Dosage: HYPERTONIC
  4. REFRESH P.M. [Concomitant]
     Active Substance: MINERAL OIL\PETROLATUM
     Indication: Dry eye
     Route: 047
     Dates: start: 202306

REACTIONS (4)
  - Corneal erosion [Unknown]
  - Eye pain [Recovered/Resolved]
  - Eye disorder [Unknown]
  - Eye operation [Unknown]

NARRATIVE: CASE EVENT DATE: 20230501
